FAERS Safety Report 5771854-1 (Version None)
Quarter: 2008Q2

REPORT INFORMATION
  Report Type: 
  Country: None (occurrence: None)
  Receive Date: 20080613
  Receipt Date: 20080530
  Transmission Date: 20081010
  Serious: Yes (Other)
  Sender: FDA-Public Use
  Company Number: B0503481A

PATIENT
  Age: 43 Year
  Sex: Male

DRUGS (5)
  1. ZYBAN [Suspect]
     Indication: DRUG USE FOR UNKNOWN INDICATION
     Route: 065
  2. SELOKEN [Suspect]
     Indication: DRUG USE FOR UNKNOWN INDICATION
     Route: 065
     Dates: start: 20070802, end: 20070810
  3. TREO COMP [Concomitant]
  4. ASPIRIN [Concomitant]
  5. CEFADROXIL [Concomitant]

REACTIONS (3)
  - ATRIAL FLUTTER [None]
  - BRADYCARDIA [None]
  - DRUG INTERACTION [None]
